FAERS Safety Report 8288322-8 (Version None)
Quarter: 2012Q2

REPORT INFORMATION
  Report Type: 
  Country: None (occurrence: None)
  Receive Date: 20120416
  Receipt Date: 20120405
  Transmission Date: 20120825
  Serious: Yes (Other)
  Sender: FDA-Public Use
  Company Number: US-ASTRAZENECA-2011SE49085

PATIENT
  Age: 63 Year
  Sex: Female

DRUGS (6)
  1. SEROQUEL XR [Suspect]
     Indication: DEPRESSION
     Route: 048
  2. SEROQUEL XR [Suspect]
     Route: 048
  3. SEROQUEL XR [Suspect]
     Route: 048
  4. SEROQUEL XR [Suspect]
     Route: 048
  5. SEROQUEL XR [Suspect]
     Route: 048
  6. SEROQUEL XR [Suspect]
     Indication: ANXIETY DISORDER
     Route: 048

REACTIONS (14)
  - FEELING ABNORMAL [None]
  - HEADACHE [None]
  - ADVERSE DRUG REACTION [None]
  - OVERDOSE [None]
  - SOMNOLENCE [None]
  - ACTIVITIES OF DAILY LIVING IMPAIRED [None]
  - PAIN [None]
  - SEDATION [None]
  - INTENTIONAL DRUG MISUSE [None]
  - VOMITING [None]
  - DIZZINESS [None]
  - COLORECTAL CANCER [None]
  - MALAISE [None]
  - VIRAL INFECTION [None]
